FAERS Safety Report 6190591-5 (Version None)
Quarter: 2009Q2

REPORT INFORMATION
  Report Type: 
  Country: None (occurrence: None)
  Receive Date: 20090514
  Receipt Date: 20090206
  Transmission Date: 20091009
  Serious: Yes (Other)
  Sender: FDA-Public Use
  Company Number: US-BRISTOL-MYERS SQUIBB COMPANY-14497812

PATIENT
  Age: 7 Decade
  Sex: Female

DRUGS (1)
  1. IXEMPRA KIT [Suspect]
     Indication: BREAST CANCER METASTATIC
     Dosage: FIRST DOSE IN THE WEEK OF 26JAN2008
     Dates: start: 20080101

REACTIONS (3)
  - ANOREXIA [None]
  - FATIGUE [None]
  - WEIGHT DECREASED [None]
